FAERS Safety Report 23159972 (Version 1)
Quarter: 2023Q4

REPORT INFORMATION
  Report Type: Spontaneous
  Country: DE (occurrence: DE)
  Receive Date: 20231108
  Receipt Date: 20231108
  Transmission Date: 20240109
  Serious: Yes (Other)
  Sender: FDA-Public Use
  Company Number: DE-002147023-NVSC2023DE225736

PATIENT
  Sex: Male

DRUGS (2)
  1. EVEROLIMUS [Suspect]
     Active Substance: EVEROLIMUS
     Indication: Clear cell renal cell carcinoma
     Dosage: 5 MILLIGRAM
     Route: 065
     Dates: start: 202303, end: 2023
  2. EVEROLIMUS [Suspect]
     Active Substance: EVEROLIMUS
     Dosage: 7.5 MILLIGRAM
     Route: 065
     Dates: start: 2023

REACTIONS (3)
  - Metastases to abdominal wall [Unknown]
  - Metastases to thorax [Unknown]
  - Weight decreased [Unknown]

NARRATIVE: CASE EVENT DATE: 20230701
